FAERS Safety Report 8789080 (Version 2)
Quarter: 2012Q4

REPORT INFORMATION
  Report Type: 
  Country: US (occurrence: US)
  Receive Date: 20120917
  Receipt Date: 20121101
  Transmission Date: 20130627
  Serious: No
  Sender: FDA-Public Use
  Company Number: US-009507513-1208USA000135

PATIENT
  Age: 0 Year
  Sex: Male
  Weight: 75.74 kg

DRUGS (7)
  1. PEG-INTRON [Suspect]
     Dosage: 120 Microgram/0.5ml
     Route: 058
  2. PEG-INTRON [Suspect]
     Dosage: 150 UNK, UNK
  3. REBETOL [Suspect]
     Dosage: 200 mg, UNK
  4. TELAPREVIR [Concomitant]
     Dosage: 375 mg, UNK
  5. HUMULIN R [Concomitant]
  6. NOVOLOG [Concomitant]
     Dosage: 100/ml
  7. LISINOPRIL [Concomitant]
     Dosage: 40 mg, UNK

REACTIONS (3)
  - Haemorrhoids [Recovering/Resolving]
  - Pruritus generalised [Unknown]
  - Weight decreased [Unknown]
